FAERS Safety Report 4368768-0 (Version None)
Quarter: 2004Q2

REPORT INFORMATION
  Report Type: 
  Country: None (occurrence: None)
  Receive Date: 20040525
  Receipt Date: 20040514
  Transmission Date: 20050107
  Serious: Yes (Death, Life-Threatening)
  Sender: FDA-Public Use
  Company Number: 2004AP02537

PATIENT
  Age: 38 Year
  Sex: Female

DRUGS (1)
  1. MARCAINE [Suspect]
     Indication: SPINAL ANAESTHESIA
     Dosage: 2.2 ML ONCE IT
     Route: 038
     Dates: start: 20040227, end: 20040227

REACTIONS (6)
  - CARDIAC ARREST [None]
  - COMPLICATIONS OF MATERNAL EXPOSURE TO THERAPEUTIC DRUGS [None]
  - HYPOTENSION [None]
  - OPERATIVE HAEMORRHAGE [None]
  - TONIC CONVULSION [None]
  - VENTRICULAR FIBRILLATION [None]
